FAERS Safety Report 8984546 (Version 1)
Quarter: 2012Q4

REPORT INFORMATION
  Report Type: Report from Study
  Country: CA (occurrence: CA)
  Receive Date: 20121226
  Receipt Date: 20121226
  Transmission Date: 20130627
  Serious: Yes (Other)
  Sender: FDA-Public Use
  Company Number: CA-JNJFOC-20121208620

PATIENT
  Age: 50 None
  Sex: Female
  Weight: 75.6 kg

DRUGS (1)
  1. REMICADE [Suspect]
     Indication: CROHN^S DISEASE
     Route: 042
     Dates: start: 20120701, end: 20121017

REACTIONS (3)
  - Bone operation [Unknown]
  - Tooth extraction [Unknown]
  - Sinusitis [Unknown]
